FAERS Safety Report 14241610 (Version 2)
Quarter: 2017Q4

REPORT INFORMATION
  Report Type: Report from Study
  Country: US (occurrence: US)
  Receive Date: 20171201
  Receipt Date: 20171207
  Transmission Date: 20180321
  Serious: Yes (Hospitalization)
  Sender: FDA-Public Use
  Company Number: US-ROCHE-2029945

PATIENT
  Age: 73 Year
  Sex: Male
  Weight: 82.9 kg

DRUGS (8)
  1. CARBOPLATIN. [Suspect]
     Active Substance: CARBOPLATIN
     Dosage: ON DAY 29 CYCLE 1
     Route: 042
     Dates: start: 20171004
  2. CARBOPLATIN. [Suspect]
     Active Substance: CARBOPLATIN
     Dosage: ON DAY 8 CYCLE 2
     Route: 042
     Dates: start: 20170912
  3. CARBOPLATIN. [Suspect]
     Active Substance: CARBOPLATIN
     Dosage: ON DAY 15 CYCLE 1
     Route: 042
     Dates: start: 20170919
  4. ATEZOLIZUMAB. [Suspect]
     Active Substance: ATEZOLIZUMAB
     Indication: NON-SMALL CELL LUNG CANCER
     Dosage: 60 MG/ML?DATE OF MOST RECENT DOSE RECEIVED: 26/SEP/2017
     Route: 042
     Dates: start: 20170905
  5. CARBOPLATIN. [Suspect]
     Active Substance: CARBOPLATIN
     Indication: NON-SMALL CELL LUNG CANCER
     Dosage: 10 MG/ML?AUC 2  ON DAY 1 CYCLE 1 DURING RADIATION THERAPY
     Route: 042
     Dates: start: 20170905
  6. CARBOPLATIN. [Suspect]
     Active Substance: CARBOPLATIN
     Dosage: ON DAY 36 CYCLE 1
     Route: 042
     Dates: start: 20171011
  7. CARBOPLATIN. [Suspect]
     Active Substance: CARBOPLATIN
     Dosage: ON DAY 22 CYCLE 1
     Route: 042
     Dates: start: 20170926
  8. PACLITAXEL. [Suspect]
     Active Substance: PACLITAXEL
     Indication: NON-SMALL CELL LUNG CANCER
     Dosage: DOSE: 6 MG/ML, DURING RADIATION THERAPY?DATE OF DOSE RECEIVED: 12/SEP/2017, 19/SEP/2017, 26/SEP/2017
     Route: 042
     Dates: start: 20170905

REACTIONS (2)
  - Nephritis [Unknown]
  - Acute kidney injury [Unknown]

NARRATIVE: CASE EVENT DATE: 20171107
